FAERS Safety Report 7272150-6 (Version None)
Quarter: 2011Q1

REPORT INFORMATION
  Report Type: 
  Country: None (occurrence: None)
  Receive Date: 20110203
  Receipt Date: 20110119
  Transmission Date: 20110831
  Serious: Yes (Hospitalization, Other)
  Sender: FDA-Public Use
  Company Number: PHHY2010US86946

PATIENT
  Sex: Male
  Weight: 29.5 kg

DRUGS (9)
  1. EXJADE [Suspect]
     Indication: IRON OVERLOAD
     Dosage: 500 MG, DAILY
     Dates: start: 20070601
  2. ALBUTEROL [Concomitant]
  3. TYLENOL-500 [Concomitant]
  4. HYDROXYUREA [Concomitant]
     Dosage: 1000 MG, DAILY
     Route: 048
     Dates: start: 20070101
  5. DEFEROXAMINE MESYLATE [Concomitant]
     Indication: IRON OVERLOAD
     Dosage: 360 MG, UNK
     Route: 042
     Dates: start: 20100625
  6. IBUPROFEN [Concomitant]
     Indication: PAIN
     Dosage: 200 MG, UNK
  7. BECLOMETHASONE DIPROPIONATE [Concomitant]
     Indication: ASTHMA
     Dosage: 2 PUFF , BID
  8. DESFERAL [Concomitant]
  9. EXJADE [Suspect]
     Dosage: 1000 MG, QD
     Route: 048
     Dates: start: 20100301, end: 20101216

REACTIONS (15)
  - COMMUNICATION DISORDER [None]
  - HYPOKINESIA [None]
  - WHITE BLOOD CELL COUNT INCREASED [None]
  - CEREBROVASCULAR ACCIDENT [None]
  - CLONUS [None]
  - TONGUE PARALYSIS [None]
  - ABNORMAL BEHAVIOUR [None]
  - MUSCULAR WEAKNESS [None]
  - MEMORY IMPAIRMENT [None]
  - FEELING ABNORMAL [None]
  - PLATELET COUNT INCREASED [None]
  - HAEMOGLOBIN DECREASED [None]
  - CEREBRAL INFARCTION [None]
  - GAIT DISTURBANCE [None]
  - HEADACHE [None]
